FAERS Safety Report 25913416 (Version 1)
Quarter: 2025Q4

REPORT INFORMATION
  Report Type: Spontaneous
  Country: US (occurrence: US)
  Receive Date: 20251013
  Receipt Date: 20251013
  Transmission Date: 20260117
  Serious: Yes (Life-Threatening, Hospitalization)
  Sender: MYLAN
  Company Number: US-MYLANLABS-2025M1086352

PATIENT
  Age: 65 Year
  Sex: Male

DRUGS (16)
  1. FENTANYL TRANSDERMAL SYSTEM [Suspect]
     Active Substance: FENTANYL
     Indication: Pain
     Dosage: 100 MICROGRAM, QH
  2. FENTANYL TRANSDERMAL SYSTEM [Suspect]
     Active Substance: FENTANYL
     Indication: Prophylaxis
     Dosage: 100 MICROGRAM, QH
     Route: 065
  3. FENTANYL TRANSDERMAL SYSTEM [Suspect]
     Active Substance: FENTANYL
     Indication: Withdrawal syndrome
     Dosage: 100 MICROGRAM, QH
     Route: 065
  4. FENTANYL TRANSDERMAL SYSTEM [Suspect]
     Active Substance: FENTANYL
     Dosage: 100 MICROGRAM, QH
  5. HYDROMORPHONE [Suspect]
     Active Substance: HYDROMORPHONE
     Indication: Pain
     Dosage: UNK, RECEIVED LONG-STANDING HYDROMORPHONE INTRATHECAL DRUG DELIVERY SYSTEMS
  6. HYDROMORPHONE [Suspect]
     Active Substance: HYDROMORPHONE
     Dosage: UNK, RECEIVED LONG-STANDING HYDROMORPHONE INTRATHECAL DRUG DELIVERY SYSTEMS
     Route: 037
  7. HYDROMORPHONE [Suspect]
     Active Substance: HYDROMORPHONE
     Dosage: UNK, RECEIVED LONG-STANDING HYDROMORPHONE INTRATHECAL DRUG DELIVERY SYSTEMS
     Route: 037
  8. HYDROMORPHONE [Suspect]
     Active Substance: HYDROMORPHONE
     Dosage: UNK, RECEIVED LONG-STANDING HYDROMORPHONE INTRATHECAL DRUG DELIVERY SYSTEMS
  9. HYDROMORPHONE [Suspect]
     Active Substance: HYDROMORPHONE
     Indication: Pain
     Dosage: 1 MILLIGRAM, QH, RECEIVED HYDROMORPHONE PATIENT-CONTROLLED ANALGESIA AT 1MG/HR WITH A 0.5 MG EVERY 15 MINUTE DOSE
  10. HYDROMORPHONE [Suspect]
     Active Substance: HYDROMORPHONE
     Indication: Prophylaxis
     Dosage: 1 MILLIGRAM, QH, RECEIVED HYDROMORPHONE PATIENT-CONTROLLED ANALGESIA AT 1MG/HR WITH A 0.5 MG EVERY 15 MINUTE DOSE
     Route: 065
  11. HYDROMORPHONE [Suspect]
     Active Substance: HYDROMORPHONE
     Indication: Withdrawal syndrome
     Dosage: 1 MILLIGRAM, QH, RECEIVED HYDROMORPHONE PATIENT-CONTROLLED ANALGESIA AT 1MG/HR WITH A 0.5 MG EVERY 15 MINUTE DOSE
     Route: 065
  12. HYDROMORPHONE [Suspect]
     Active Substance: HYDROMORPHONE
     Dosage: 1 MILLIGRAM, QH, RECEIVED HYDROMORPHONE PATIENT-CONTROLLED ANALGESIA AT 1MG/HR WITH A 0.5 MG EVERY 15 MINUTE DOSE
  13. VANCOMYCIN [Concomitant]
     Active Substance: VANCOMYCIN
     Indication: Device related infection
     Dosage: UNK
  14. VANCOMYCIN [Concomitant]
     Active Substance: VANCOMYCIN
     Dosage: UNK
     Route: 042
  15. VANCOMYCIN [Concomitant]
     Active Substance: VANCOMYCIN
     Dosage: UNK
     Route: 042
  16. VANCOMYCIN [Concomitant]
     Active Substance: VANCOMYCIN
     Dosage: UNK

REACTIONS (2)
  - Respiratory depression [Unknown]
  - Respiratory failure [Unknown]
